FAERS Safety Report 24845119 (Version 1)
Quarter: 2025Q1

REPORT INFORMATION
  Report Type: Spontaneous
  Country: IT (occurrence: IT)
  Receive Date: 20250115
  Receipt Date: 20250115
  Transmission Date: 20250409
  Serious: Yes (Other)
  Sender: PFIZER
  Company Number: IT-PFIZER INC-2018349240

PATIENT
  Age: 42 Year
  Sex: Male

DRUGS (3)
  1. CABERGOLINE [Suspect]
     Active Substance: CABERGOLINE
     Indication: Prolactin-producing pituitary tumour
  2. CABERGOLINE [Suspect]
     Active Substance: CABERGOLINE
  3. CABERGOLINE [Suspect]
     Active Substance: CABERGOLINE
     Dosage: UNK, 2X/WEEK

REACTIONS (3)
  - Cerebrospinal fluid leakage [Recovered/Resolved]
  - Off label use [Unknown]
  - Off label use [Unknown]
